FAERS Safety Report 11250490 (Version 1)
Quarter: 2015Q3

REPORT INFORMATION
  Report Type: Spontaneous
  Country: US (occurrence: US)
  Receive Date: 20150708
  Receipt Date: 20150708
  Transmission Date: 20151125
  Serious: No
  Sender: FDA-Public Use
  Company Number: US-ELI_LILLY_AND_COMPANY-US201101001678

PATIENT
  Sex: Female

DRUGS (4)
  1. LIPITOR [Concomitant]
     Active Substance: ATORVASTATIN CALCIUM
  2. COUMADIN [Concomitant]
     Active Substance: WARFARIN SODIUM
  3. ATENOLOL. [Concomitant]
     Active Substance: ATENOLOL
  4. ALIMTA [Suspect]
     Active Substance: PEMETREXED DISODIUM
     Indication: ADENOCARCINOMA
     Dosage: UNK, EVERY 3 WEEKS

REACTIONS (2)
  - Lacrimation increased [Unknown]
  - Vision blurred [Unknown]
